FAERS Safety Report 7675823-6 (Version None)
Quarter: 2011Q3

REPORT INFORMATION
  Report Type: 
  Country: None (occurrence: None)
  Receive Date: 20110810
  Receipt Date: 20110801
  Transmission Date: 20111222
  Serious: Yes (Hospitalization, Other)
  Sender: FDA-Public Use
  Company Number: US-ASTRAZENECA-2010SE33999

PATIENT
  Age: 88 Year
  Sex: Female

DRUGS (3)
  1. ARIMIDEX [Suspect]
     Indication: ADJUVANT THERAPY
     Route: 048
     Dates: start: 20080101
  2. CRESTOR [Suspect]
     Route: 048
  3. NEXIUM [Suspect]
     Route: 048

REACTIONS (7)
  - DIZZINESS [None]
  - NEOPLASM MALIGNANT [None]
  - MALAISE [None]
  - OEDEMA MOUTH [None]
  - OVERDOSE [None]
  - DRY THROAT [None]
  - DRY MOUTH [None]
